FAERS Safety Report 10934942 (Version 2)
Quarter: 2015Q2

REPORT INFORMATION
  Report Type: Report from Study
  Country: GR (occurrence: GR)
  Receive Date: 20150320
  Receipt Date: 20150504
  Transmission Date: 20150821
  Serious: Yes (Death, Hospitalization)
  Sender: FDA-Public Use
  Company Number: GR-CELGENE-GRC-2015032775

PATIENT
  Age: 72 Year
  Sex: Male
  Weight: 90 kg

DRUGS (1)
  1. ABRAXANE [Suspect]
     Active Substance: PACLITAXEL
     Indication: GASTRIC CANCER
     Dosage: 17.8571
     Route: 041
     Dates: start: 20141212, end: 20150202

REACTIONS (4)
  - Ascites [Fatal]
  - Blood bilirubin increased [Unknown]
  - Pleural effusion [Fatal]
  - Biliary dilatation [Fatal]

NARRATIVE: CASE EVENT DATE: 20150225
